FAERS Safety Report 16112471 (Version 4)
Quarter: 2020Q1

REPORT INFORMATION
  Report Type: Spontaneous
  Country: US (occurrence: US)
  Receive Date: 20190325
  Receipt Date: 20200224
  Transmission Date: 20200409
  Serious: No
  Sender: FDA-Public Use
  Company Number: US-PFIZER INC-2017401606

PATIENT
  Age: 41 Year
  Sex: Female

DRUGS (1)
  1. SOMAVERT [Suspect]
     Active Substance: PEGVISOMANT
     Dosage: 40 MG, DAILY
     Route: 058
     Dates: start: 201508

REACTIONS (6)
  - Drug ineffective [Unknown]
  - Swelling [Unknown]
  - Headache [Unknown]
  - Insulin-like growth factor increased [Unknown]
  - Intentional product misuse [Unknown]
  - Overdose [Unknown]

NARRATIVE: CASE EVENT DATE: 201508
